FAERS Safety Report 5351729-2 (Version None)
Quarter: 2007Q2

REPORT INFORMATION
  Report Type: 
  Country: None (occurrence: None)
  Receive Date: 20070521
  Receipt Date: 20070223
  Transmission Date: 20071010
  Serious: No
  Sender: FDA-Public Use
  Company Number: WAES 0702USA04226

PATIENT
  Age: 79 Year
  Sex: Male
  Weight: 73.4827 kg

DRUGS (6)
  1. JANUVIA [Suspect]
     Indication: DIABETES MELLITUS
     Dosage: 100 MG/DAILY/PO
     Route: 048
     Dates: start: 20070221, end: 20070221
  2. ARICEPT [Concomitant]
  3. LIPITOR [Concomitant]
  4. PROSCAR [Concomitant]
  5. SINEMET [Concomitant]
  6. HYDROCHLOROTHIAZIDE [Concomitant]

REACTIONS (2)
  - DIZZINESS [None]
  - NAUSEA [None]
